FAERS Safety Report 5639370-5 (Version None)
Quarter: 2008Q1

REPORT INFORMATION
  Report Type: 
  Country: None (occurrence: None)
  Receive Date: 20080226
  Receipt Date: 20080214
  Transmission Date: 20080703
  Serious: Yes (Other)
  Sender: FDA-Public Use
  Company Number: US-PFIZER INC-2007091150

PATIENT
  Sex: Female
  Weight: 75.8 kg

DRUGS (4)
  1. CHANTIX [Suspect]
     Indication: SMOKING CESSATION THERAPY
     Route: 048
     Dates: start: 20070907, end: 20071001
  2. ALPRAZOLAM [Suspect]
     Indication: ANXIETY
  3. EFFEXOR [Concomitant]
  4. ELMIRON [Concomitant]

REACTIONS (5)
  - DRUG INEFFECTIVE [None]
  - HALLUCINATION [None]
  - INSOMNIA [None]
  - PANIC ATTACK [None]
  - PARANOIA [None]
